FAERS Safety Report 6666204-2 (Version None)
Quarter: 2010Q1

REPORT INFORMATION
  Report Type: 
  Country: None (occurrence: None)
  Receive Date: 20100331
  Receipt Date: 20100322
  Transmission Date: 20100710
  Serious: Yes (Hospitalization)
  Sender: FDA-Public Use
  Company Number: USA/USA/10/0010380

PATIENT
  Age: 67 Year
  Sex: Female
  Weight: 64.5 kg

DRUGS (1)
  1. RAMIPRIL [Suspect]
     Indication: HYPERTENSION
     Dosage: 5 MG, 1 IN 1 D, PER ORAL
     Route: 048

REACTIONS (3)
  - ABSCESS [None]
  - CORNEAL DISORDER [None]
  - PUSTULAR PSORIASIS [None]
